FAERS Safety Report 18318556 (Version 1)
Quarter: 2020Q3

REPORT INFORMATION
  Report Type: Spontaneous
  Country: US (occurrence: US)
  Receive Date: 20200928
  Receipt Date: 20200928
  Transmission Date: 20201103
  Serious: Yes (Other)
  Sender: FDA-Public Use
  Company Number: US-ROCHE-2677949

PATIENT
  Sex: Female

DRUGS (2)
  1. OCREVUS [Suspect]
     Active Substance: OCRELIZUMAB
     Indication: PRIMARY PROGRESSIVE MULTIPLE SCLEROSIS
     Route: 042
  2. AMPYRA [Concomitant]
     Active Substance: DALFAMPRIDINE

REACTIONS (5)
  - Vestibular neuronitis [Unknown]
  - Viral infection [Unknown]
  - Fatigue [Unknown]
  - Fungal infection [Unknown]
  - Urinary tract infection [Unknown]
